FAERS Safety Report 5649587-1 (Version None)
Quarter: 2008Q1

REPORT INFORMATION
  Report Type: 
  Country: None (occurrence: None)
  Receive Date: 20080304
  Receipt Date: 20080221
  Transmission Date: 20080703
  Serious: Yes (Other)
  Sender: FDA-Public Use
  Company Number: US-PFIZER INC-2008017077

PATIENT
  Sex: Female

DRUGS (2)
  1. LYRICA [Suspect]
  2. NEURONTIN [Suspect]

REACTIONS (4)
  - HYPERSENSITIVITY [None]
  - PARALYSIS [None]
  - RASH [None]
  - SWELLING FACE [None]
